FAERS Safety Report 15597059 (Version 1)
Quarter: 2018Q4

REPORT INFORMATION
  Report Type: Report from Study
  Country: NL (occurrence: NL)
  Receive Date: 20181108
  Receipt Date: 20181108
  Transmission Date: 20190205
  Serious: Yes (Other)
  Sender: FDA-Public Use
  Company Number: NL-AUROBINDO-AUR-APL-2018-054196

PATIENT
  Age: 42 Year
  Sex: Male

DRUGS (4)
  1. PREDNISONE TABLET [Suspect]
     Active Substance: PREDNISONE
     Indication: IMMUNOGLOBULIN G4 RELATED DISEASE
     Dosage: UNK
     Route: 065
  2. PREDNISONE TABLET [Suspect]
     Active Substance: PREDNISONE
     Dosage: UNK, TAPERING
     Route: 065
  3. HYDROXYCHLOROQUINE SULFATE. [Suspect]
     Active Substance: HYDROXYCHLOROQUINE SULFATE
     Indication: IMMUNOGLOBULIN G4 RELATED DISEASE
     Dosage: UNK
     Route: 065
  4. AZATHIOPRINE. [Concomitant]
     Active Substance: AZATHIOPRINE
     Indication: IMMUNOGLOBULIN G4 RELATED DISEASE
     Dosage: UNK
     Route: 065

REACTIONS (3)
  - Immunoglobulin G4 related disease [Unknown]
  - Off label use [Unknown]
  - Rebound effect [Unknown]
